FAERS Safety Report 12237785 (Version 2)
Quarter: 2016Q2

REPORT INFORMATION
  Report Type: Spontaneous
  Country: US (occurrence: US)
  Receive Date: 20160405
  Receipt Date: 20160510
  Transmission Date: 20160815
  Serious: Yes (Hospitalization)
  Sender: FDA-Public Use
  Company Number: PHEH2016US007775

PATIENT
  Age: 61 Year
  Sex: Female
  Weight: 76.66 kg

DRUGS (5)
  1. AFINITOR [Suspect]
     Active Substance: EVEROLIMUS
     Indication: PRODUCT USED FOR UNKNOWN INDICATION
     Dosage: 10 MG, QD
     Route: 065
     Dates: start: 201601, end: 201601
  2. TOPROL XL [Concomitant]
     Active Substance: METOPROLOL SUCCINATE
     Indication: WOLFF-PARKINSON-WHITE SYNDROME
     Dosage: STARTED BEFORE 2007
     Route: 065
  3. INTERFERON [Concomitant]
     Active Substance: INTERFERON
     Indication: HEPATITIS C
     Dosage: AROUND 2000 TO 2002
     Route: 065
  4. RIBAVIRIN. [Concomitant]
     Active Substance: RIBAVIRIN
     Indication: HEPATITIS C
     Dosage: AROUND 2000 TO 2002
     Route: 065
  5. AROMASIN [Suspect]
     Active Substance: EXEMESTANE
     Indication: PRODUCT USED FOR UNKNOWN INDICATION
     Dosage: 25 MG, QD
     Route: 065
     Dates: start: 201601, end: 201601

REACTIONS (9)
  - Feeding disorder [Unknown]
  - Vomiting [Unknown]
  - Cerebrovascular accident [Unknown]
  - Diarrhoea [Unknown]
  - Nausea [Unknown]
  - Weight decreased [Unknown]
  - Fatigue [Unknown]
  - Neuropathy peripheral [Unknown]
  - Bone neoplasm [Unknown]

NARRATIVE: CASE EVENT DATE: 201601
